FAERS Safety Report 4485781-3 (Version None)
Quarter: 2004Q4

REPORT INFORMATION
  Report Type: 
  Country: None (occurrence: None)
  Receive Date: 20041026
  Receipt Date: 20040408
  Transmission Date: 20050328
  Serious: Yes (Other)
  Sender: FDA-Public Use
  Company Number: US-ROCHE-364125

PATIENT
  Age: 47 Year
  Sex: Male

DRUGS (4)
  1. PEGASYS [Suspect]
     Indication: DRUG USE FOR UNKNOWN INDICATION
     Route: 058
     Dates: start: 20031129, end: 20040414
  2. PEGASYS [Suspect]
     Route: 058
     Dates: start: 20040421
  3. COPEGUS [Suspect]
     Indication: DRUG USE FOR UNKNOWN INDICATION
     Route: 048
     Dates: start: 20031129
  4. COPEGUS [Suspect]
     Route: 048

REACTIONS (7)
  - COUGH [None]
  - DISEASE RECURRENCE [None]
  - DYSPNOEA [None]
  - FISTULA [None]
  - OPEN WOUND [None]
  - PLATELET COUNT ABNORMAL [None]
  - ULCER [None]
